FAERS Safety Report 22077862 (Version 1)
Quarter: 2023Q1

REPORT INFORMATION
  Report Type: Spontaneous
  Country: US (occurrence: US)
  Receive Date: 20230309
  Receipt Date: 20230309
  Transmission Date: 20230417
  Serious: No
  Sender: FDA-Public Use
  Company Number: US-BRISTOL-MYERS SQUIBB COMPANY-2023-033889

PATIENT
  Age: 62 Year
  Sex: Female
  Weight: 88.45 kg

DRUGS (1)
  1. REVLIMID [Suspect]
     Active Substance: LENALIDOMIDE
     Indication: Plasma cell myeloma
     Dosage: FREQUENCY: DAILY DAYS 1-28 EVERY 28 DAYS
     Route: 048
     Dates: start: 20230301

REACTIONS (3)
  - Nausea [Unknown]
  - Mood swings [Unknown]
  - Crying [Unknown]

NARRATIVE: CASE EVENT DATE: 20230301
